FAERS Safety Report 4404912-4 (Version None)
Quarter: 2004Q3

REPORT INFORMATION
  Report Type: 
  Country: None (occurrence: None)
  Receive Date: 20040719
  Receipt Date: 20040701
  Transmission Date: 20050211
  Serious: Yes (Other)
  Sender: FDA-Public Use
  Company Number: 2004BL004860

PATIENT
  Age: 54 Year
  Sex: Female

DRUGS (4)
  1. PREDNISOLONE SODIUM PHOSPHATE [Suspect]
  2. ARCOXIA TABLETS (ETORICOXIB) (UNMAPPED) [Suspect]
     Indication: ARTHRALGIA
     Dosage: 60 MG; ONCE A DAY; ORAL
     Route: 048
     Dates: start: 20040101, end: 20040101
  3. HYDROXYCHLOROQUINE SULFATE [Concomitant]
  4. LANSOPRAZOLE [Concomitant]

REACTIONS (2)
  - FAECES DISCOLOURED [None]
  - GASTROINTESTINAL HAEMORRHAGE [None]
